FAERS Safety Report 8364095-5 (Version None)
Quarter: 2012Q2

REPORT INFORMATION
  Report Type: 
  Country: None (occurrence: None)
  Receive Date: 20120516
  Receipt Date: 20120313
  Transmission Date: 20120825
  Serious: Yes (Hospitalization, Other)
  Sender: FDA-Public Use
  Company Number: US-ALEXION-A201200222

PATIENT
  Sex: Male

DRUGS (14)
  1. SOLIRIS [Suspect]
     Dosage: 900 MG, SINGLE
     Route: 042
     Dates: start: 20120106, end: 20120106
  2. LORAZEPAM [Concomitant]
     Indication: ANXIETY
     Dosage: PRN0.5 MG, QID
     Route: 048
     Dates: start: 20111215
  3. MULTI-VITAMIN [Concomitant]
     Dosage: 0.5 TABLET, BID
     Route: 048
  4. DUONEB [Concomitant]
     Dosage: 2.5-0.5 MG/3 ML, QD BY NEBULIZER
  5. OMEPRAZOLE [Concomitant]
     Dosage: 20 MG, QD
     Route: 048
     Dates: start: 20120113
  6. SOLIRIS [Suspect]
     Dosage: 1200 MG, UNK
     Route: 042
     Dates: start: 20120113
  7. AMLODIPINE BESYLATE [Concomitant]
     Dosage: 10 MG, QD
     Route: 048
  8. KLOR-CON [Concomitant]
     Dosage: 8 MEQ, BID PRN
     Route: 048
     Dates: start: 20120206
  9. ADVAIR DISKUS 100/50 [Concomitant]
     Dosage: 1 PUFF, BID BY INHALATION
     Dates: start: 20120123
  10. MS CONTIN [Concomitant]
     Dosage: 15 MG, BID
  11. CODEINE PHOSPHATE AND ACETAMINOPHEN [Concomitant]
     Indication: PAIN
     Dosage: 300-30 MG Q 4-6 HOURS PRN
     Route: 048
     Dates: start: 20120208
  12. LOVAZA [Concomitant]
     Dosage: 1000 MG, QD
     Route: 048
  13. SOLIRIS [Suspect]
     Indication: HAEMOLYTIC URAEMIC SYNDROME
     Dosage: UNK
     Route: 042
     Dates: start: 20111217, end: 20111230
  14. SOLIRIS [Suspect]
     Dosage: 900 MG, UNK
     Route: 042
     Dates: start: 20120207

REACTIONS (6)
  - OEDEMA PERIPHERAL [None]
  - JOINT SWELLING [None]
  - PNEUMONIA [None]
  - OXYGEN SATURATION [None]
  - COUGH [None]
  - NECK PAIN [None]
